FAERS Safety Report 14239732 (Version 1)
Quarter: 2017Q4

REPORT INFORMATION
  Report Type: Spontaneous
  Country: US (occurrence: US)
  Receive Date: 20171128
  Receipt Date: 20171128
  Transmission Date: 20180321
  Serious: Yes (Life-Threatening)
  Sender: FDA-Public Use
  Company Number: None

PATIENT
  Age: 68 Year
  Sex: Female
  Weight: 81.9 kg

DRUGS (1)
  1. ENOXAPARIN SUBSTITUTE FOR LOVENOX [Suspect]
     Active Substance: ENOXAPARIN SODIUM
     Indication: PERIPHERAL ARTERY THROMBOSIS
     Dosage: ?          QUANTITY:14 INJECTION(S);?
     Route: 058
     Dates: start: 20171119, end: 20171126

REACTIONS (3)
  - Retching [None]
  - Dyspnoea [None]
  - Chest discomfort [None]

NARRATIVE: CASE EVENT DATE: 20171126
